FAERS Safety Report 6283641-9 (Version None)
Quarter: 2009Q3

REPORT INFORMATION
  Report Type: 
  Country: None (occurrence: None)
  Receive Date: 20090724
  Receipt Date: 20090715
  Transmission Date: 20100115
  Serious: Yes (Other)
  Sender: FDA-Public Use
  Company Number: PHHY2009GB29662

PATIENT

DRUGS (2)
  1. TEGRETOL [Suspect]
     Dosage: MATERNAL DOSE WAS 200 MG OD
     Route: 064
  2. CARBAMAZEPINE [Suspect]
     Dosage: MATERNAL DOSE WAS 100 MG BD
     Route: 064

REACTIONS (2)
  - DRUG EXPOSURE DURING PREGNANCY [None]
  - FOETAL ANTICONVULSANT SYNDROME [None]
